FAERS Safety Report 17942836 (Version 2)
Quarter: 2020Q2

REPORT INFORMATION
  Report Type: Spontaneous
  Country: DE (occurrence: DE)
  Receive Date: 20200625
  Receipt Date: 20200630
  Transmission Date: 20200714
  Serious: Yes (Hospitalization)
  Sender: FDA-Public Use
  Company Number: NVSC2020DE176721

PATIENT
  Age: 52 Year
  Sex: Male

DRUGS (7)
  1. ALPRAZOLAM. [Suspect]
     Active Substance: ALPRAZOLAM
     Dosage: 8 MG, QD
     Route: 065
  2. TAFIL [Suspect]
     Active Substance: ALPRAZOLAM
     Indication: PRODUCT USED FOR UNKNOWN INDICATION
     Dosage: 3 MG, QD
     Route: 065
  3. TAFIL [Suspect]
     Active Substance: ALPRAZOLAM
     Dosage: 4.5 MG, QD
     Route: 065
  4. PROPRANOLOL [Concomitant]
     Active Substance: PROPRANOLOL HYDROCHLORIDE
     Indication: ANXIETY DISORDER
     Dosage: 0.25-150 MG PER DAY
     Route: 065
     Dates: start: 2019
  5. SERTRALINE [Concomitant]
     Active Substance: SERTRALINE HYDROCHLORIDE
     Indication: ANXIETY DISORDER
     Dosage: 100 MG, QD
     Route: 065
     Dates: start: 1998
  6. ALPRAZOLAM. [Suspect]
     Active Substance: ALPRAZOLAM
     Dosage: 3 MG, QD
     Route: 065
  7. ALPRAZOLAM. [Suspect]
     Active Substance: ALPRAZOLAM
     Indication: PRODUCT USED FOR UNKNOWN INDICATION
     Dosage: 4.5 MG, QD
     Route: 065

REACTIONS (7)
  - Off label use [Unknown]
  - Incorrect product administration duration [Unknown]
  - Sedation [Unknown]
  - Social anxiety disorder [Unknown]
  - Drug ineffective [Not Recovered/Not Resolved]
  - Dependence [Unknown]
  - Anxiety [Unknown]

NARRATIVE: CASE EVENT DATE: 201904
